FAERS Safety Report 23242778 (Version 1)
Quarter: 2023Q4

REPORT INFORMATION
  Report Type: Spontaneous
  Country: AU (occurrence: AU)
  Receive Date: 20231129
  Receipt Date: 20231129
  Transmission Date: 20240109
  Serious: Yes (Death, Other)
  Sender: FDA-Public Use
  Company Number: AU-EMA-DD-20200928-faizan_m-110431

PATIENT
  Age: 39 Year
  Sex: Female

DRUGS (10)
  1. ACETAMINOPHEN [Suspect]
     Active Substance: ACETAMINOPHEN
     Indication: Product used for unknown indication
     Dosage: UNK
     Route: 065
  2. DIAZEPAM [Interacting]
     Active Substance: DIAZEPAM
     Indication: Product used for unknown indication
     Dosage: UNK
     Route: 065
  3. MORPHINE [Interacting]
     Active Substance: MORPHINE
  4. PROMETHAZINE [Interacting]
     Active Substance: PROMETHAZINE HYDROCHLORIDE
  5. OXAZEPAM [Interacting]
     Active Substance: OXAZEPAM
  6. METFORMIN [Suspect]
     Active Substance: METFORMIN HYDROCHLORIDE
  7. MIRTAZAPINE [Interacting]
     Active Substance: MIRTAZAPINE
  8. NORDAZEPAM [Interacting]
     Active Substance: NORDAZEPAM
  9. CODEINE [Interacting]
     Active Substance: CODEINE
  10. PREGABALIN [Interacting]
     Active Substance: PREGABALIN

REACTIONS (1)
  - Toxicity to various agents [Fatal]
